FAERS Safety Report 20405470 (Version 1)
Quarter: 2022Q1

REPORT INFORMATION
  Report Type: Spontaneous
  Country: US (occurrence: None)
  Receive Date: 20220129
  Receipt Date: 20220129
  Transmission Date: 20220423
  Serious: No
  Sender: FDA-Public Use
  Company Number: None

PATIENT
  Age: 60 Year
  Sex: Female
  Weight: 117 kg

DRUGS (8)
  1. METOPROLOL SUCCINATE [Suspect]
     Active Substance: METOPROLOL SUCCINATE
     Indication: Hypertension
     Dosage: OTHER QUANTITY : 1 TABLET(S);?FREQUENCY : AT BEDTIME;?
     Route: 048
     Dates: start: 20220102, end: 20220103
  2. LISINOPRIL [Concomitant]
     Active Substance: LISINOPRIL
  3. METOPROLOL [Concomitant]
     Active Substance: METOPROLOL
  4. LUMIGAN [Concomitant]
     Active Substance: BIMATOPROST
  5. ALPHAGAN P [Concomitant]
     Active Substance: BRIMONIDINE TARTRATE
  6. VITAMIN D [Concomitant]
     Active Substance: VITAMIN D NOS
  7. VITAMINS [Concomitant]
     Active Substance: VITAMINS
  8. CALCIUM [Concomitant]
     Active Substance: CALCIUM

REACTIONS (3)
  - Nausea [None]
  - Abdominal pain upper [None]
  - Product substitution issue [None]

NARRATIVE: CASE EVENT DATE: 20220102
